FAERS Safety Report 20691524 (Version 3)
Quarter: 2024Q3

REPORT INFORMATION
  Report Type: Report from Study
  Country: CA (occurrence: CA)
  Receive Date: 20220408
  Receipt Date: 20240912
  Transmission Date: 20241017
  Serious: Yes (Other)
  Sender: ROCHE
  Company Number: CA-ROCHE-3063117

PATIENT
  Age: 39 Year
  Sex: Female

DRUGS (4)
  1. OCREVUS [Suspect]
     Active Substance: OCRELIZUMAB
     Indication: Relapsing-remitting multiple sclerosis
     Dosage: THEN 600 MG EVERY 6 MONTHS
     Route: 042
     Dates: start: 20211119
  2. CIPRALEX [Concomitant]
     Active Substance: ESCITALOPRAM OXALATE
  3. BACLOFEN [Concomitant]
     Active Substance: BACLOFEN
  4. TOLTERODINE [Concomitant]
     Active Substance: TOLTERODINE

REACTIONS (4)
  - Demyelination [Unknown]
  - COVID-19 [Recovering/Resolving]
  - Cystitis [Not Recovered/Not Resolved]
  - SARS-CoV-2 test positive [Recovering/Resolving]

NARRATIVE: CASE EVENT DATE: 20220101
